FAERS Safety Report 5289294-0 (Version None)
Quarter: 2007Q2

REPORT INFORMATION
  Report Type: 
  Country: None (occurrence: None)
  Receive Date: 20070406
  Receipt Date: 20070402
  Transmission Date: 20071010
  Serious: Yes (Hospitalization)
  Sender: FDA-Public Use
  Company Number: DEWYE300702APR07

PATIENT
  Sex: Female
  Weight: 71 kg

DRUGS (3)
  1. VENLAFAXINE HCL [Suspect]
     Indication: DEPRESSION
     Dosage: UNKNOWN
  2. KORODIN [Concomitant]
  3. LEVOTHYROXINE SODIUM [Concomitant]
     Dosage: 150 ?G

REACTIONS (6)
  - ASTHENIA [None]
  - CARDIAC AUTONOMIC NEUROPATHY [None]
  - CARDIOVASCULAR FUNCTION TEST ABNORMAL [None]
  - DIASTOLIC DYSFUNCTION [None]
  - PULMONARY HYPERTENSION [None]
  - VAGUS NERVE DISORDER [None]
